FAERS Safety Report 19306108 (Version 1)
Quarter: 2021Q2

REPORT INFORMATION
  Report Type: Spontaneous
  Country: US (occurrence: US)
  Receive Date: 20210526
  Receipt Date: 20210526
  Transmission Date: 20210717
  Serious: Yes (Death, Hospitalization, Other)
  Sender: FDA-Public Use
  Company Number: US-ADVANZ PHARMA-202105003667

PATIENT

DRUGS (1)
  1. HYDROXYCHLOROQUINE [Suspect]
     Active Substance: HYDROXYCHLOROQUINE
     Indication: RHEUMATOID ARTHRITIS
     Dosage: UNK
     Route: 065

REACTIONS (20)
  - Lymphadenopathy [Fatal]
  - Pancytopenia [Fatal]
  - Hepatic lesion [Fatal]
  - Nucleated red cells [Fatal]
  - Fatigue [Fatal]
  - Ascites [Fatal]
  - Abdominal pain [Fatal]
  - Hepatomegaly [Fatal]
  - Haemodynamic instability [Fatal]
  - Thrombocytopenia [Fatal]
  - Hodgkin^s disease stage IV [Fatal]
  - Pyrexia [Fatal]
  - Jaundice [Fatal]
  - Hepatic function abnormal [Fatal]
  - Lymphoproliferative disorder [Fatal]
  - Anaemia [Fatal]
  - Hepatic steatosis [Fatal]
  - Tachycardia [Fatal]
  - Polychromasia [Fatal]
  - Epistaxis [Fatal]
